FAERS Safety Report 12175189 (Version 1)
Quarter: 2016Q1

REPORT INFORMATION
  Report Type: Spontaneous
  Country: TR (occurrence: TR)
  Receive Date: 20160314
  Receipt Date: 20160314
  Transmission Date: 20160526
  Serious: Yes (Hospitalization)
  Sender: FDA-Public Use
  Company Number: TR-NOVOPROD-483224

PATIENT
  Age: 25 Year
  Sex: Female

DRUGS (2)
  1. INSULIN GLARGINE [Suspect]
     Active Substance: INSULIN GLARGINE
     Indication: TYPE 1 DIABETES MELLITUS
     Dosage: 600 UNITS
     Route: 065
  2. INSULIN ASPART [Suspect]
     Active Substance: INSULIN ASPART
     Indication: TYPE 1 DIABETES MELLITUS
     Dosage: 400 UNITS
     Route: 065

REACTIONS (3)
  - Hypoglycaemia [Unknown]
  - Suicide attempt [Unknown]
  - Intentional overdose [Unknown]
